FAERS Safety Report 7271505-3 (Version None)
Quarter: 2011Q1

REPORT INFORMATION
  Report Type: 
  Country: None (occurrence: None)
  Receive Date: 20110203
  Receipt Date: 20101221
  Transmission Date: 20110831
  Serious: Yes (Hospitalization, Other)
  Sender: FDA-Public Use
  Company Number: US-BAYER-200830161NA

PATIENT
  Sex: Female
  Weight: 95 kg

DRUGS (8)
  1. ANXIOLYTICS [Suspect]
     Indication: MENTAL DISORDER
  2. YAZ [Suspect]
     Indication: CONTRACEPTION
     Dosage: 1 TAB/DAY
     Route: 048
     Dates: start: 20070722, end: 20070731
  3. GAS X [Concomitant]
     Route: 048
  4. ANTIDEPRESSANTS [Suspect]
     Indication: MENTAL DISORDER
  5. YAZ [Suspect]
     Indication: HORMONE REPLACEMENT THERAPY
  6. ANTIPSYCHOTICS [Suspect]
     Indication: MENTAL DISORDER
  7. CENTRUM [Concomitant]
     Dosage: 1 DF (DAILY DOSE), QD, ORAL
     Route: 048
  8. MULTI-VITAMINS [Concomitant]
     Dosage: 1 DF (DAILY DOSE), QD, ORAL
     Route: 048

REACTIONS (11)
  - IRRITABILITY [None]
  - HOMICIDAL IDEATION [None]
  - ANXIETY [None]
  - IMPAIRED WORK ABILITY [None]
  - DISTURBANCE IN ATTENTION [None]
  - ABDOMINAL DISTENSION [None]
  - ABDOMINAL PAIN [None]
  - DEPRESSION [None]
  - UNEVALUABLE EVENT [None]
  - POOR QUALITY SLEEP [None]
  - NAUSEA [None]
